FAERS Safety Report 7420458-3 (Version None)
Quarter: 2011Q2

REPORT INFORMATION
  Report Type: 
  Country: None (occurrence: None)
  Receive Date: 20110418
  Receipt Date: 20110412
  Transmission Date: 20111010
  Serious: No
  Sender: FDA-Public Use
  Company Number: US-PFIZER INC-2011081566

PATIENT
  Sex: Female
  Weight: 72.56 kg

DRUGS (2)
  1. CHANTIX [Suspect]
     Indication: SMOKING CESSATION THERAPY
     Dosage: 1 MG, 2X/DAY
     Route: 048
     Dates: start: 20110411
  2. VITAMIN D [Concomitant]
     Dosage: 50000 IU, 2X/WEEK
     Route: 048

REACTIONS (2)
  - NAUSEA [None]
  - VOMITING [None]
